FAERS Safety Report 17782474 (Version 2)
Quarter: 2020Q3

REPORT INFORMATION
  Report Type: Spontaneous
  Country: DE (occurrence: DE)
  Receive Date: 20200514
  Receipt Date: 20200929
  Transmission Date: 20201102
  Serious: Yes (Life-Threatening, Hospitalization)
  Sender: FDA-Public Use
  Company Number: DE-TEVA-2020-DE-1234608

PATIENT
  Age: 70 Year
  Sex: Male
  Weight: 93 kg

DRUGS (14)
  1. AZOPT [Concomitant]
     Active Substance: BRINZOLAMIDE
     Dosage: 20 MILLIGRAM/MILLILITERS DAILY; 1?1?0?0
  2. PANTOPRAZOL [Concomitant]
     Active Substance: PANTOPRAZOLE SODIUM
     Dosage: 40 MILLIGRAM DAILY; 1?0?0?0
  3. ACETYLSALICYLSAURE [Concomitant]
     Active Substance: ASPIRIN
     Dosage: 100 MILLIGRAM DAILY; 0?1?0?0
  4. SIMVASTATIN. [Concomitant]
     Active Substance: SIMVASTATIN
     Dosage: 40 MILLIGRAM DAILY; 0?0?1?0
  5. BISOPROLOL [Concomitant]
     Active Substance: BISOPROLOL
     Dosage: 1.25 MILLIGRAM DAILY; 1?0?0?0
  6. RISPERIDON [Suspect]
     Active Substance: RISPERIDONE
     Dosage: 1.5 MILLIGRAM DAILY; 0?0?1?0
     Route: 065
  7. HYDROCHLOROTHIAZID [Suspect]
     Active Substance: HYDROCHLOROTHIAZIDE
     Dosage: 50 MILLIGRAM DAILY; 25 MG, 1?0?1?0
     Route: 065
  8. CORVATON 8MG [Concomitant]
     Dosage: 8 MILLIGRAM DAILY; 0?0?1?0
  9. IMIPRAMIN [Suspect]
     Active Substance: IMIPRAMINE
     Dosage: 25 MILLIGRAM DAILY; 1?0?0?0
     Route: 065
  10. ALPHAGAN P [Concomitant]
     Active Substance: BRIMONIDINE TARTRATE
     Dosage: 3 DOSAGE FORMS DAILY; 1?1?1?0
  11. METFORMIN [Concomitant]
     Active Substance: METFORMIN HYDROCHLORIDE
     Dosage: 3000 MILLIGRAM DAILY; 1000 MG, 1?1?1?0
  12. RAMIPRIL. [Concomitant]
     Active Substance: RAMIPRIL
     Dosage: 10 MILLIGRAM DAILY; 5 MG, 1?0?1?0
  13. JANUVIA [Concomitant]
     Active Substance: SITAGLIPTIN PHOSPHATE
     Dosage: 100 MILLIGRAM DAILY; 1?0?0?0
  14. XALATAN [Concomitant]
     Active Substance: LATANOPROST
     Dosage: 1 DOSAGE FORMS DAILY; 0?0?1?0

REACTIONS (9)
  - Fluid intake reduced [Unknown]
  - Somnolence [Unknown]
  - Electrolyte imbalance [Unknown]
  - Pyelitis [Unknown]
  - Hyponatraemia [Unknown]
  - Apathy [Unknown]
  - General physical health deterioration [Unknown]
  - Hypophagia [Unknown]
  - Hydronephrosis [Unknown]
